FAERS Safety Report 8439464 (Version 3)
Quarter: 2013Q2

REPORT INFORMATION
  Report Type: Spontaneous
  Country: MX (occurrence: MX)
  Receive Date: 20120302
  Receipt Date: 20130419
  Transmission Date: 20140414
  Serious: Yes (Death)
  Sender: FDA-Public Use
  Company Number: PHHY2012MX017612

PATIENT
  Age: 77 Year
  Sex: Female

DRUGS (7)
  1. DIOVAN [Suspect]
     Indication: HYPERTENSION
     Dosage: 2 DF (80 MG), DAILY
  2. CALCORT [Concomitant]
     Indication: PULMONARY FIBROSIS
     Dosage: 1 DF, EVERY 24 HOURS
     Dates: start: 201111
  3. ASPIRIN [Concomitant]
     Indication: PULMONARY FIBROSIS
     Dosage: 1 DF, QD
  4. ASPIRIN [Concomitant]
     Indication: HEADACHE
  5. ASPIRIN [Concomitant]
     Indication: ISCHAEMIC HEART DISEASE PROPHYLAXIS
  6. LASIX [Concomitant]
     Indication: OEDEMA PERIPHERAL
     Dosage: 40 MG, QD
  7. OXYGEN [Concomitant]
     Indication: PULMONARY FIBROSIS

REACTIONS (2)
  - Cardiac arrest [Fatal]
  - Myocardial infarction [Fatal]
